FAERS Safety Report 14993930 (Version 1)
Quarter: 2018Q2

REPORT INFORMATION
  Report Type: Report from Study
  Country: None (occurrence: BR)
  Receive Date: 20180611
  Receipt Date: 20180611
  Transmission Date: 20180711
  Serious: Yes (Death, Hospitalization, Other)
  Sender: FDA-Public Use
  Company Number: BR-ABBVIE-18K-020-2304033-00

PATIENT
  Age: 74 Year
  Sex: Female
  Weight: 50 kg

DRUGS (1)
  1. HUMIRA [Suspect]
     Active Substance: ADALIMUMAB
     Indication: RHEUMATOID ARTHRITIS
     Route: 058
     Dates: start: 20100419

REACTIONS (4)
  - Respiratory failure [Fatal]
  - Depression [Unknown]
  - Malaise [Unknown]
  - Joint arthroplasty [Recovered/Resolved]

NARRATIVE: CASE EVENT DATE: 20180305
